FAERS Safety Report 9224754 (Version 2)
Quarter: 2013Q2

REPORT INFORMATION
  Report Type: Spontaneous
  Country: US (occurrence: US)
  Receive Date: 20130411
  Receipt Date: 20130521
  Transmission Date: 20140414
  Serious: Yes (Death, Hospitalization, Other)
  Sender: FDA-Public Use
  Company Number: US-ASTELLAS-2013US003752

PATIENT
  Age: 76 Year
  Sex: Male
  Weight: 78 kg

DRUGS (2)
  1. XTANDI [Suspect]
     Indication: PROSTATE CANCER METASTATIC
     Dosage: 160 MG, UID/QD
     Route: 048
     Dates: start: 20121018
  2. XTANDI [Suspect]
     Dosage: 2 DF, UID/QD
     Route: 048
     Dates: end: 2013

REACTIONS (18)
  - Death [Fatal]
  - Hypovolaemia [Recovering/Resolving]
  - Hypotension [Recovering/Resolving]
  - Anaemia [Recovering/Resolving]
  - Cerebrovascular accident [Unknown]
  - Malignant neoplasm progression [Unknown]
  - Nocturia [Unknown]
  - Erectile dysfunction [Unknown]
  - Hypoacusis [Unknown]
  - Arteriosclerosis [Unknown]
  - Thrombocytopenia [Unknown]
  - Cardiac murmur [Unknown]
  - Pain [Recovered/Resolved]
  - Dizziness [Unknown]
  - Oedema peripheral [Unknown]
  - Arthralgia [Unknown]
  - Myalgia [Unknown]
  - Asthenia [Unknown]
